FAERS Safety Report 7303369-3 (Version None)
Quarter: 2011Q1

REPORT INFORMATION
  Report Type: 
  Country: None (occurrence: None)
  Receive Date: 20110221
  Receipt Date: 20110211
  Transmission Date: 20110831
  Serious: Yes (Other)
  Sender: FDA-Public Use
  Company Number: US-NOVOPROD-323206

PATIENT
  Sex: Female
  Weight: 115.19 kg

DRUGS (3)
  1. SYNTHROID [Concomitant]
     Indication: GOITRE
     Dosage: UNK
     Route: 048
  2. NOVOLOG MIX 70/30 [Concomitant]
     Indication: TYPE 2 DIABETES MELLITUS
     Route: 058
  3. LEVEMIR [Suspect]
     Indication: TYPE 2 DIABETES MELLITUS
     Dosage: 20 U, QD
     Route: 058
     Dates: start: 20110101

REACTIONS (2)
  - PAIN IN EXTREMITY [None]
  - PRURITUS [None]
